FAERS Safety Report 22285879 (Version 2)
Quarter: 2023Q2

REPORT INFORMATION
  Report Type: Report from Study
  Country: CO (occurrence: CO)
  Receive Date: 20230504
  Receipt Date: 20230517
  Transmission Date: 20230721
  Serious: Yes (Hospitalization)
  Sender: FDA-Public Use
  Company Number: CO-ABBVIE-4751418

PATIENT
  Age: 37 Year
  Sex: Female

DRUGS (3)
  1. SKYRIZI [Suspect]
     Active Substance: RISANKIZUMAB-RZAA
     Indication: Psoriasis
     Route: 058
     Dates: start: 20210615
  2. SKYRIZI [Suspect]
     Active Substance: RISANKIZUMAB-RZAA
     Indication: Nail psoriasis
  3. BETAMETHASONE [Concomitant]
     Active Substance: BETAMETHASONE
     Indication: Psoriasis
     Route: 061
     Dates: start: 20210115

REACTIONS (7)
  - Back pain [Recovered/Resolved]
  - Pollakiuria [Recovered/Resolved]
  - Nephrolithiasis [Recovered/Resolved]
  - Sacral pain [Recovered/Resolved]
  - Bladder disorder [Recovered/Resolved]
  - Renal colic [Recovered/Resolved]
  - Dysuria [Recovered/Resolved]

NARRATIVE: CASE EVENT DATE: 20230426
